FAERS Safety Report 12668517 (Version 8)
Quarter: 2017Q3

REPORT INFORMATION
  Report Type: Spontaneous
  Country: RS (occurrence: RS)
  Receive Date: 20160819
  Receipt Date: 20170801
  Transmission Date: 20171127
  Serious: Yes (Hospitalization, Other)
  Sender: FDA-Public Use
  Company Number: RS-TAKEDA-2016MPI005459

PATIENT
  Age: 80 Year
  Sex: Female
  Weight: 54 kg

DRUGS (10)
  1. ACETYLSALICYLIC ACID [Concomitant]
     Active Substance: ASPIRIN
     Indication: HYPERTENSION
     Dosage: 100 MG, QD
     Route: 048
     Dates: start: 20100407
  2. NOLPAZA [Concomitant]
     Active Substance: PANTOPRAZOLE SODIUM
     Indication: PROPHYLAXIS
     Dosage: 20 MG, BID
     Route: 048
     Dates: start: 20160505
  3. PREDNISONE. [Suspect]
     Active Substance: PREDNISONE
     Indication: PLASMA CELL MYELOMA
     Dosage: 90 MG, UNK
     Route: 048
     Dates: start: 20160505, end: 20160508
  4. PRILENAP HL [Concomitant]
     Indication: HYPERTENSION
     Dosage: 10 MG, BID
     Route: 048
     Dates: start: 20100407
  5. VELCADE [Suspect]
     Active Substance: BORTEZOMIB
     Dosage: 1.5 MG, QD
     Route: 058
     Dates: start: 20160526
  6. MELPHALAN. [Suspect]
     Active Substance: MELPHALAN
     Indication: PLASMA CELL MYELOMA
     Dosage: 6.75 MG/M2, UNK
     Route: 048
  7. MELPHALAN. [Suspect]
     Active Substance: MELPHALAN
     Dosage: 13.5 MG, QD
     Route: 048
     Dates: start: 20160505, end: 20160508
  8. VELCADE [Suspect]
     Active Substance: BORTEZOMIB
     Indication: PLASMA CELL MYELOMA
     Dosage: 1.95 MG, QD
     Route: 058
     Dates: start: 20160505, end: 20160515
  9. TENSEC [Concomitant]
     Indication: HYPERTENSION
     Dosage: 5 MG, QD
     Route: 048
     Dates: start: 20100407
  10. TRIMETAZIDINE HYDROCHLORIDE [Concomitant]
     Active Substance: TRIMETAZIDINE DIHYDROCHLORIDE
     Indication: HYPERTENSION
     Dosage: 35 MG, BID
     Route: 048
     Dates: start: 20100407

REACTIONS (5)
  - Neutropenia [Recovered/Resolved]
  - Anaemia [Unknown]
  - Escherichia urinary tract infection [Unknown]
  - Febrile neutropenia [Recovered/Resolved]
  - Thrombocytopenia [Recovered/Resolved]

NARRATIVE: CASE EVENT DATE: 20160526
